FAERS Safety Report 10932130 (Version 1)
Quarter: 2015Q1

REPORT INFORMATION
  Report Type: Spontaneous
  Country: US (occurrence: None)
  Receive Date: 20150225
  Receipt Date: 20150225
  Transmission Date: 20150721
  Serious: Yes (Other)
  Sender: FDA-Public Use
  Company Number: 2014-US-005224

PATIENT
  Age: 49 Year
  Sex: Female

DRUGS (5)
  1. MORPHINE SULFATE (MORPHINE SULFATE) INJECTION [Suspect]
     Active Substance: MORPHINE SULFATE
     Indication: PAIN
     Route: 037
  2. CLONIDINE. [Suspect]
     Active Substance: CLONIDINE
     Indication: PAIN
     Route: 037
  3. BUPIVACAINE HYDROCHLORIDE. [Suspect]
     Active Substance: BUPIVACAINE HYDROCHLORIDE
     Indication: PAIN
     Route: 037
  4. PRIALT [Suspect]
     Active Substance: ZICONOTIDE ACETATE
     Indication: PAIN
     Route: 037
  5. FENTANYL (FENTANYL CITRATE) INJECTION [Suspect]
     Active Substance: FENTANYL
     Indication: PAIN
     Route: 037

REACTIONS (4)
  - Depressed level of consciousness [None]
  - Overdose [None]
  - Somnolence [None]
  - Insomnia [None]

NARRATIVE: CASE EVENT DATE: 20140422
